FAERS Safety Report 5359631-7 (Version None)
Quarter: 2007Q2

REPORT INFORMATION
  Report Type: 
  Country: None (occurrence: None)
  Receive Date: 20070615
  Receipt Date: 20070605
  Transmission Date: 20071010
  Serious: Yes (Death, Other)
  Sender: FDA-Public Use
  Company Number: JP-SHR-JP-2007-019961

PATIENT
  Age: 65 Year
  Sex: Female

DRUGS (7)
  1. LANIRAPID [Concomitant]
     Dosage: .05 MG, 1X/DAY
     Route: 048
     Dates: start: 20020131
  2. ACARDI [Concomitant]
     Dosage: 2.5 MG, 1X/DAY
     Route: 048
     Dates: start: 20020131
  3. LASIX [Concomitant]
     Dosage: 60 MG, 1X/DAY
     Route: 048
     Dates: start: 20020131
  4. ALDACTONE [Concomitant]
     Dosage: 75 MG, 1X/DAY
     Route: 048
     Dates: start: 20020131
  5. WARFARIN POTASSIUM [Concomitant]
     Dosage: 1 MG, 1X/DAY
     Route: 048
     Dates: start: 20020131
  6. METOPROLOL TARTRATE [Concomitant]
     Dosage: 5 MG, 1X/DAY
     Route: 048
     Dates: start: 20020131
  7. SOTALOL HCL [Suspect]
     Indication: VENTRICULAR FIBRILLATION
     Route: 048
     Dates: start: 20020131

REACTIONS (2)
  - ARTERIAL THROMBOSIS LIMB [None]
  - EMBOLISM [None]
